FAERS Safety Report 18539173 (Version 1)
Quarter: 2020Q4

REPORT INFORMATION
  Report Type: Spontaneous
  Country: US (occurrence: US)
  Receive Date: 20201123
  Receipt Date: 20201123
  Transmission Date: 20210114
  Serious: Yes (Other)
  Sender: FDA-Public Use
  Company Number: None

PATIENT
  Age: 25 Year
  Sex: Male
  Weight: 90.72 kg

DRUGS (1)
  1. METHYLPHENIDATE HYDROCHLORIDE 36MG XR [Suspect]
     Active Substance: METHYLPHENIDATE HYDROCHLORIDE
     Indication: ATTENTION DEFICIT HYPERACTIVITY DISORDER
     Dosage: ?          OTHER FREQUENCY:QAM;?
     Route: 048
     Dates: start: 20201109

REACTIONS (7)
  - Muscle spasms [None]
  - Product substitution issue [None]
  - Diarrhoea [None]
  - Dissociation [None]
  - Panic reaction [None]
  - Heart rate increased [None]
  - Hypersensitivity [None]

NARRATIVE: CASE EVENT DATE: 20201109
